FAERS Safety Report 9441184 (Version 1)
Quarter: 2013Q3

REPORT INFORMATION
  Report Type: Spontaneous
  Country: IN (occurrence: None)
  Receive Date: 20130801
  Receipt Date: 20130801
  Transmission Date: 20140515
  Serious: Yes (Disabling, Other)
  Sender: FDA-Public Use
  Company Number: 2013/149

PATIENT
  Age: 65 Year
  Sex: Female

DRUGS (4)
  1. AMLODIPINE [Suspect]
     Indication: HYPERTENSION
  2. ATORVASTATIN [Suspect]
  3. FUROSEMIDE (NO PREF NAME) [Concomitant]
  4. INSULIN (NO PREF. NAME) [Concomitant]

REACTIONS (1)
  - Rhabdomyolysis [None]
